FAERS Safety Report 19103672 (Version 1)
Quarter: 2021Q2

REPORT INFORMATION
  Report Type: Spontaneous
  Country: US (occurrence: US)
  Receive Date: 20210407
  Receipt Date: 20210407
  Transmission Date: 20210717
  Serious: Yes (Other)
  Sender: FDA-Public Use
  Company Number: US-BRISTOL-MYERS SQUIBB COMPANY-BMS-2021-030951

PATIENT
  Age: 66 Year
  Sex: Female
  Weight: 95.25 kg

DRUGS (1)
  1. OPDIVO [Suspect]
     Active Substance: NIVOLUMAB
     Indication: RENAL CELL CARCINOMA
     Dosage: UNAVAILABLE
     Route: 065
     Dates: start: 2019

REACTIONS (1)
  - Cerebral disorder [Recovered/Resolved]

NARRATIVE: CASE EVENT DATE: 2020
